FAERS Safety Report 10755486 (Version 1)
Quarter: 2015Q1

REPORT INFORMATION
  Report Type: Spontaneous
  Country: US (occurrence: None)
  Receive Date: 20150123
  Receipt Date: 20150123
  Transmission Date: 20150721
  Serious: Yes (Other)
  Sender: FDA-Public Use
  Company Number: TPA2012A01014

PATIENT
  Age: 02 Year
  Sex: Female

DRUGS (1)
  1. PREVACID SOLUTAB [Suspect]
     Active Substance: LANSOPRAZOLE
     Dosage: EVERY MORNING
     Route: 048

REACTIONS (3)
  - Overdose [None]
  - Off label use [None]
  - Seizure [None]

NARRATIVE: CASE EVENT DATE: 2012
